FAERS Safety Report 16744124 (Version 1)
Quarter: 2019Q3

REPORT INFORMATION
  Report Type: Spontaneous
  Country: US (occurrence: US)
  Receive Date: 20190827
  Receipt Date: 20190827
  Transmission Date: 20191005
  Serious: No
  Sender: FDA-Public Use
  Company Number: US-ASTRAZENECA-2019SF18067

PATIENT
  Sex: Female
  Weight: 79.4 kg

DRUGS (7)
  1. PROAIR HFA [Concomitant]
     Active Substance: ALBUTEROL SULFATE
     Indication: ASTHMA
     Dosage: 90.0UG AS REQUIRED
     Route: 055
  2. NOVOLOG [Concomitant]
     Active Substance: INSULIN ASPART
     Indication: ACQUIRED LIPOATROPHIC DIABETES
     Dosage: 5USP UNITS BEFORE MEALS
     Route: 058
     Dates: start: 1998
  3. METOPROLOL SUCCINATE. [Suspect]
     Active Substance: METOPROLOL SUCCINATE
     Route: 048
     Dates: start: 201904
  4. VITAMIN D3 [Concomitant]
     Active Substance: CHOLECALCIFEROL
     Route: 048
  5. BRILINTA [Suspect]
     Active Substance: TICAGRELOR
     Indication: COMPLICATION ASSOCIATED WITH DEVICE
     Route: 048
     Dates: start: 201904
  6. ROSUVASTATIN CALCIUM. [Suspect]
     Active Substance: ROSUVASTATIN CALCIUM
     Indication: BLOOD CHOLESTEROL
     Route: 048
     Dates: start: 201904
  7. TOUJEO [Concomitant]
     Active Substance: INSULIN GLARGINE
     Indication: DIABETES MELLITUS
     Dosage: 100USP UNITS DAILY
     Route: 058
     Dates: start: 2015

REACTIONS (7)
  - Rotator cuff syndrome [Unknown]
  - Lung disorder [Unknown]
  - Dyspnoea [Not Recovered/Not Resolved]
  - Blood cholesterol abnormal [Unknown]
  - Chest pain [Recovering/Resolving]
  - Dizziness [Recovering/Resolving]
  - Oesophagitis [Unknown]
